FAERS Safety Report 23107818 (Version 1)
Quarter: 2023Q4

REPORT INFORMATION
  Report Type: Report from Study
  Country: PH (occurrence: PH)
  Receive Date: 20231026
  Receipt Date: 20231026
  Transmission Date: 20240109
  Serious: Yes (Life-Threatening)
  Sender: FDA-Public Use
  Company Number: PH-002147023-NVSC2022PH304438

PATIENT

DRUGS (3)
  1. RUXOLITINIB [Suspect]
     Active Substance: RUXOLITINIB
     Indication: Myelofibrosis
     Dosage: 5 MG, OTHER
     Route: 048
     Dates: start: 20220706
  2. RUXOLITINIB [Suspect]
     Active Substance: RUXOLITINIB
     Dosage: 1 DOSAGE FORM (DAILY)
     Route: 065
     Dates: start: 20220719
  3. RUXOLITINIB [Suspect]
     Active Substance: RUXOLITINIB
     Dosage: 1 DOSAGE FORM, QD (ONCE A DAY)
     Route: 065
     Dates: start: 20220831

REACTIONS (2)
  - Inappropriate schedule of product administration [Unknown]
  - Platelet count decreased [Unknown]
